FAERS Safety Report 23035710 (Version 3)
Quarter: 2023Q4

REPORT INFORMATION
  Report Type: Report from Study
  Country: US (occurrence: US)
  Receive Date: 20231006
  Receipt Date: 20231027
  Transmission Date: 20240110
  Serious: Yes (Other)
  Sender: FDA-Public Use
  Company Number: US-ABBVIE-5394503

PATIENT
  Age: 68 Year
  Sex: Male
  Weight: 86 kg

DRUGS (1)
  1. RINVOQ [Suspect]
     Active Substance: UPADACITINIB
     Indication: Rheumatoid arthritis
     Route: 048
     Dates: start: 20220905, end: 20230903

REACTIONS (4)
  - Trigger finger [Recovered/Resolved]
  - Pain [Not Recovered/Not Resolved]
  - Rheumatoid arthritis [Unknown]
  - Peripheral swelling [Recovering/Resolving]

NARRATIVE: CASE EVENT DATE: 20230201
